FAERS Safety Report 25388926 (Version 1)
Quarter: 2025Q2

REPORT INFORMATION
  Report Type: Spontaneous
  Country: US (occurrence: US)
  Receive Date: 20250603
  Receipt Date: 20250603
  Transmission Date: 20250717
  Serious: No
  Sender: PADAGIS
  Company Number: US-PADAGIS-2025PAD00660

PATIENT

DRUGS (2)
  1. TRETINOIN [Suspect]
     Active Substance: TRETINOIN
     Indication: Product used for unknown indication
     Route: 065
  2. TRETINOIN [Suspect]
     Active Substance: TRETINOIN
     Route: 065

REACTIONS (4)
  - Skin burning sensation [Unknown]
  - Pruritus [Unknown]
  - Erythema [Unknown]
  - Expired product administered [Unknown]
